FAERS Safety Report 6011415-2 (Version None)
Quarter: 2008Q4

REPORT INFORMATION
  Report Type: 
  Country: None (occurrence: None)
  Receive Date: 20081218
  Receipt Date: 19991123
  Transmission Date: 20090506
  Serious: Yes (Death, Hospitalization, Other)
  Sender: FDA-Public Use
  Company Number: US-ROCHE-205973

PATIENT
  Age: 86 Year
  Sex: Female
  Weight: 68 kg

DRUGS (4)
  1. DEMADEX [Suspect]
     Indication: AORTIC STENOSIS
     Route: 048
     Dates: start: 19980501, end: 19990501
  2. DEMADEX [Suspect]
     Route: 048
     Dates: start: 19990501
  3. TAURINE [Suspect]
     Indication: DRUG USE FOR UNKNOWN INDICATION
     Route: 065
  4. POTASSIUM SUPPLEMENT [Concomitant]

REACTIONS (14)
  - ASTHENIA [None]
  - CONFUSIONAL STATE [None]
  - DEATH [None]
  - DECREASED APPETITE [None]
  - DIZZINESS [None]
  - INCOHERENT [None]
  - LOSS OF CONSCIOUSNESS [None]
  - NAUSEA [None]
  - OEDEMA PERIPHERAL [None]
  - PAIN [None]
  - POLYURIA [None]
  - PULMONARY OEDEMA [None]
  - RENAL ATROPHY [None]
  - TREMOR [None]
